FAERS Safety Report 24789565 (Version 1)
Quarter: 2024Q4

REPORT INFORMATION
  Report Type: Spontaneous
  Country: RO (occurrence: RO)
  Receive Date: 20241230
  Receipt Date: 20241230
  Transmission Date: 20250114
  Serious: Yes (Other)
  Sender: FRESENIUS KABI
  Company Number: None

PATIENT
  Age: 46 Year
  Sex: Female

DRUGS (5)
  1. ACETAMINOPHEN [Suspect]
     Active Substance: ACETAMINOPHEN
     Indication: Product used for unknown indication
     Dosage: 1000 MG?ROA: INTRAVENOUS (NOT OTHERWISE SPECIFIED)
     Dates: start: 20241205, end: 20241205
  2. EPINEPHRINE [Concomitant]
     Active Substance: EPINEPHRINE
     Indication: Premedication
  3. Hidrocortizon hemisuccinat 100 mg [Concomitant]
     Indication: Premedication
  4. METHYLPREDNISOLONE SODIUM SUCCINATE [Concomitant]
     Active Substance: METHYLPREDNISOLONE SODIUM SUCCINATE
     Indication: Premedication
  5. DERMODRIN [Concomitant]
     Indication: Premedication
     Dosage: ROA: INTRAVENOUS (NOT OTHERWISE SPECIFIED)

REACTIONS (9)
  - Anaphylactic reaction [Recovered/Resolved]
  - Nausea [Recovered/Resolved]
  - Vomiting [Recovered/Resolved]
  - Diarrhoea [Recovered/Resolved]
  - Oxygen saturation decreased [Recovered/Resolved]
  - Heart rate decreased [Recovered/Resolved]
  - Headache [Recovered/Resolved]
  - Hyperhidrosis [Recovered/Resolved]
  - Syncope [Recovered/Resolved]

NARRATIVE: CASE EVENT DATE: 20241205
